FAERS Safety Report 6672632-1 (Version None)
Quarter: 2010Q2

REPORT INFORMATION
  Report Type: 
  Country: None (occurrence: None)
  Receive Date: 20100406
  Receipt Date: 20100322
  Transmission Date: 20101027
  Serious: Yes (Hospitalization)
  Sender: FDA-Public Use
  Company Number: 009108

PATIENT
  Sex: Female
  Weight: 73.0291 kg

DRUGS (6)
  1. CIMZIA [Suspect]
     Indication: CROHN'S DISEASE
     Dosage: 400 MG  SUBCUTANEOUS
     Route: 058
     Dates: start: 20090306
  2. SULFASALAZINE [Concomitant]
  3. FLAGYL [Concomitant]
  4. PREDNISONE TAB [Concomitant]
  5. RIFAXIMIN (RIFAXIMIN) [Concomitant]
  6. VANCOMYCIN [Concomitant]

REACTIONS (1)
  - CLOSTRIDIAL INFECTION [None]
